FAERS Safety Report 14988400 (Version 1)
Quarter: 2018Q2

REPORT INFORMATION
  Report Type: Spontaneous
  Country: ES (occurrence: ES)
  Receive Date: 20180608
  Receipt Date: 20180608
  Transmission Date: 20180711
  Serious: Yes (Death, Hospitalization, Other)
  Sender: FDA-Public Use
  Company Number: ES-PFIZER INC-2018232038

PATIENT
  Age: 59 Year
  Sex: Female

DRUGS (3)
  1. LORAZEPAM. [Suspect]
     Active Substance: LORAZEPAM
     Dosage: 25 MG, SINGLE
     Route: 048
     Dates: start: 20180410, end: 20180410
  2. GABAPENTIN. [Interacting]
     Active Substance: GABAPENTIN
     Dosage: 4.5 G, SINGLE
     Route: 048
     Dates: start: 20180410, end: 20180410
  3. TRAMADOL HCL [Interacting]
     Active Substance: TRAMADOL HYDROCHLORIDE
     Dosage: 3.5 G, SINGLE
     Route: 048
     Dates: start: 20180410, end: 20180410

REACTIONS (4)
  - Suicide attempt [Fatal]
  - Intentional overdose [Fatal]
  - Drug interaction [Fatal]
  - Coma [Fatal]

NARRATIVE: CASE EVENT DATE: 20180410
